FAERS Safety Report 5369507-7 (Version None)
Quarter: 2007Q2

REPORT INFORMATION
  Report Type: 
  Country: None (occurrence: None)
  Receive Date: 20070625
  Receipt Date: 20070619
  Transmission Date: 20071010
  Serious: Yes (Hospitalization)
  Sender: FDA-Public Use
  Company Number: A0658242A

PATIENT
  Age: 62 Year
  Sex: Female

DRUGS (10)
  1. FLOVENT [Suspect]
     Indication: ASTHMA
     Dosage: 1PUFF TWICE PER DAY
     Route: 055
     Dates: start: 19970101
  2. ANESTHESIA [Suspect]
  3. SINGULAIR [Concomitant]
  4. PREDNISONE TAB [Concomitant]
  5. PRILOSEC [Concomitant]
  6. VERAPAMIL [Concomitant]
  7. XANAX [Concomitant]
  8. NOVOLOG [Concomitant]
  9. ALBUTEROL [Concomitant]
  10. PREDNISONE TAB [Concomitant]

REACTIONS (4)
  - ADVERSE DRUG REACTION [None]
  - DYSPNOEA [None]
  - HYPERTENSION [None]
  - WHEEZING [None]
